FAERS Safety Report 8578453-7 (Version None)
Quarter: 2012Q3

REPORT INFORMATION
  Report Type: 
  Country: None (occurrence: None)
  Receive Date: 20120808
  Receipt Date: 20120730
  Transmission Date: 20120928
  Serious: Yes (Other)
  Sender: FDA-Public Use
  Company Number: US-BAYER-2012-041910

PATIENT
  Age: 21 Year
  Sex: Female
  Weight: 81.633 kg

DRUGS (2)
  1. ADVIL [Concomitant]
     Indication: HEADACHE
     Dosage: 2 (500 MG) TABLETS 2 - 3 TIMES A WEEK
     Route: 048
  2. YASMIN [Suspect]
     Indication: PREMENSTRUAL SYNDROME
     Dosage: UNK
     Dates: start: 19970101, end: 20030101

REACTIONS (6)
  - GALLBLADDER DISORDER [None]
  - PAIN [None]
  - GASTRIC ULCER [None]
  - SYNCOPE [None]
  - INJURY [None]
  - EMOTIONAL DISTRESS [None]
